FAERS Safety Report 10212600 (Version 1)
Quarter: 2014Q2

REPORT INFORMATION
  Report Type: Spontaneous
  Country: US (occurrence: US)
  Receive Date: 20140602
  Receipt Date: 20140602
  Transmission Date: 20141212
  Serious: Yes (Hospitalization, Other)
  Sender: FDA-Public Use
  Company Number: US-AMGEN-USASP2014035808

PATIENT
  Age: 64 Year
  Sex: Female

DRUGS (4)
  1. ENBREL [Suspect]
     Indication: RHEUMATOID ARTHRITIS
     Dosage: 50 MG, QWK
     Route: 065
     Dates: start: 20100301, end: 201404
  2. LEVAQUIN [Suspect]
     Indication: PNEUMONIA
     Dosage: UNK
     Route: 065
     Dates: start: 201404, end: 201404
  3. METHOTREXATE [Concomitant]
     Dosage: 10 MG, QWK HAS TAKEN FOR 11 TO 12 YEARS
     Route: 048
  4. PREDNISONE [Concomitant]
     Dosage: 1 DF, QD HAS TAKEN FOR 11 TO 12 YEARS

REACTIONS (17)
  - Pneumonia [Recovered/Resolved]
  - Urinary tract infection [Not Recovered/Not Resolved]
  - Nuclear magnetic resonance imaging abnormal [Not Recovered/Not Resolved]
  - Confusional state [Recovered/Resolved]
  - Hallucination [Recovered/Resolved]
  - Anxiety [Recovered/Resolved]
  - Paranoia [Recovered/Resolved]
  - Eating disorder [Recovered/Resolved]
  - Reading disorder [Recovered/Resolved]
  - Sleep disorder [Recovered/Resolved]
  - Arthralgia [Not Recovered/Not Resolved]
  - Pain in extremity [Not Recovered/Not Resolved]
  - Musculoskeletal pain [Not Recovered/Not Resolved]
  - Pain [Not Recovered/Not Resolved]
  - Groin pain [Not Recovered/Not Resolved]
  - Hypoaesthesia [Not Recovered/Not Resolved]
  - Paraesthesia [Not Recovered/Not Resolved]
